FAERS Safety Report 24890180 (Version 2)
Quarter: 2025Q3

REPORT INFORMATION
  Report Type: Spontaneous
  Country: CA (occurrence: CA)
  Receive Date: 20250127
  Receipt Date: 20250809
  Transmission Date: 20251021
  Serious: Yes (Hospitalization, Other)
  Sender: ALEXION PHARMACEUTICALS
  Company Number: CA-ASTRAZENECA-202501CAN020778CA

PATIENT
  Age: 55 Year
  Sex: Female
  Weight: 97 kg

DRUGS (8)
  1. BUDESONIDE [Suspect]
     Active Substance: BUDESONIDE
     Route: 065
  2. QUETIAPINE FUMARATE [Suspect]
     Active Substance: QUETIAPINE FUMARATE
     Route: 065
  3. OZEMPIC [Concomitant]
     Active Substance: SEMAGLUTIDE
  4. GLUCOSAMINE [Concomitant]
     Active Substance: GLUCOSAMINE
  5. CIPRALEX [Concomitant]
     Active Substance: ESCITALOPRAM OXALATE
  6. INFLIXIMAB [Concomitant]
     Active Substance: INFLIXIMAB
  7. CANNABIS SATIVA SUBSP. INDICA TOP [Concomitant]
     Active Substance: CANNABIS SATIVA SUBSP. INDICA TOP
  8. VITAMIN D [Concomitant]
     Active Substance: VITAMIN D NOS

REACTIONS (12)
  - Nausea [Unknown]
  - Vomiting [Unknown]
  - Abdominal pain [Recovering/Resolving]
  - Gastrointestinal disorder [Recovered/Resolved]
  - Fall [Unknown]
  - Condition aggravated [Recovered/Resolved]
  - Hypertension [Unknown]
  - Heart rate decreased [Unknown]
  - Weight increased [Not Recovered/Not Resolved]
  - Depression [Unknown]
  - Sleep apnoea syndrome [Unknown]
  - Arthroscopy [Unknown]
